FAERS Safety Report 7572545-7 (Version None)
Quarter: 2011Q2

REPORT INFORMATION
  Report Type: 
  Country: None (occurrence: None)
  Receive Date: 20110627
  Receipt Date: 20110616
  Transmission Date: 20111010
  Serious: Yes (Other)
  Sender: FDA-Public Use
  Company Number: US-BIOGENIDEC-2011BI022314

PATIENT
  Sex: Female

DRUGS (2)
  1. FLU SHOT [Concomitant]
  2. AVONEX [Suspect]
     Indication: MULTIPLE SCLEROSIS
     Route: 030
     Dates: start: 19990101

REACTIONS (3)
  - MENINGITIS [None]
  - VISUAL IMPAIRMENT [None]
  - DRUG INEFFECTIVE [None]
